FAERS Safety Report 8394279-1 (Version None)
Quarter: 2012Q2

REPORT INFORMATION
  Report Type: 
  Country: None (occurrence: None)
  Receive Date: 20120530
  Receipt Date: 20120515
  Transmission Date: 20120825
  Serious: No
  Sender: FDA-Public Use
  Company Number: US-B.I. PHARMACEUTICALS,INC./RIDGEFIELD-2012-BP-01362BP

PATIENT
  Sex: Male

DRUGS (5)
  1. PRADAXA [Suspect]
     Indication: ATRIAL FIBRILLATION
     Dosage: 300 MG
     Route: 048
     Dates: start: 20110728, end: 20120509
  2. DILTIAZEM [Concomitant]
     Dosage: 180 MG
     Route: 048
     Dates: start: 20110701
  3. FENOFIBRATE [Concomitant]
     Dosage: 160 MG
     Route: 048
     Dates: start: 20110701
  4. ATENOLOL [Concomitant]
     Indication: HYPERTENSION
     Dosage: 25 MG
     Route: 048
     Dates: start: 19720101
  5. JANUMET [Concomitant]
     Indication: BLOOD GLUCOSE INCREASED
     Dosage: 500 MG
     Route: 048
     Dates: start: 20110701

REACTIONS (5)
  - RASH [None]
  - NASAL DISCOMFORT [None]
  - EYE PRURITUS [None]
  - PRURITUS [None]
  - ORAL PRURITUS [None]
